FAERS Safety Report 8029473-2 (Version None)
Quarter: 2012Q1

REPORT INFORMATION
  Report Type: 
  Country: None (occurrence: None)
  Receive Date: 20120108
  Receipt Date: 20111228
  Transmission Date: 20120608
  Serious: Yes (Death, Hospitalization, Other)
  Sender: FDA-Public Use
  Company Number: JP-AMGEN-JPNCT2010001240

PATIENT
  Age: 60 Year
  Sex: Male
  Weight: 58 kg

DRUGS (15)
  1. IRINOTECAN HCL [Suspect]
     Indication: COLORECTAL CANCER
     Route: 041
     Dates: start: 20100904, end: 20101012
  2. FLIVAS [Concomitant]
     Route: 048
  3. ALLOPURINOL [Concomitant]
     Route: 048
  4. HERBAL PREPARATION [Concomitant]
     Route: 048
  5. BISOPROLOL FUMARATE [Concomitant]
     Route: 048
  6. TRICHLORMETHIAZIDE [Concomitant]
     Route: 048
  7. CANDESARTAN CILEXETIL [Concomitant]
     Route: 048
  8. LOXONIN [Concomitant]
     Route: 048
  9. EVIPROSTAT [Concomitant]
     Route: 048
  10. FLUOROURACIL [Concomitant]
     Indication: COLORECTAL CANCER
     Route: 040
     Dates: start: 20100904, end: 20101012
  11. FLUOROURACIL [Concomitant]
     Route: 041
     Dates: start: 20100904, end: 20101012
  12. PANITUMUMAB [Suspect]
     Indication: COLORECTAL CANCER
     Dosage: 6 MG/KG, Q2WK
     Route: 041
     Dates: start: 20100914, end: 20101012
  13. RABEPRAZOLE SODIUM [Concomitant]
     Route: 048
  14. GRANISETRON [Concomitant]
     Dosage: UNK
     Route: 065
  15. LEVOLEUCOVORIN CALCIUM [Concomitant]
     Indication: COLORECTAL CANCER
     Route: 041
     Dates: start: 20100904, end: 20101012

REACTIONS (5)
  - PANCYTOPENIA [None]
  - SEPSIS [None]
  - DIARRHOEA [None]
  - PARONYCHIA [None]
  - DERMATITIS ACNEIFORM [None]
